FAERS Safety Report 6087056-8 (Version None)
Quarter: 2009Q1

REPORT INFORMATION
  Report Type: 
  Country: None (occurrence: None)
  Receive Date: 20090223
  Receipt Date: 20090216
  Transmission Date: 20090719
  Serious: Yes (Hospitalization)
  Sender: FDA-Public Use
  Company Number: PHBS2007BE20682

PATIENT
  Sex: Male

DRUGS (4)
  1. EXFORGE [Suspect]
     Indication: HYPERTENSION
     Dosage: 5/160 MG
     Route: 048
     Dates: start: 20071123, end: 20080801
  2. RASILEZ [Concomitant]
     Dosage: 150 MG
  3. RASILEZ [Concomitant]
     Dosage: 300 MG
  4. NOBITEN [Concomitant]
     Indication: HYPERTENSION
     Dates: start: 20070529

REACTIONS (9)
  - ARTERIAL STENOSIS [None]
  - ARTERIOSPASM CORONARY [None]
  - CHEST DISCOMFORT [None]
  - CHEST PAIN [None]
  - HYPERTENSION [None]
  - INSOMNIA [None]
  - MYOCARDIAL INFARCTION [None]
  - PAIN IN EXTREMITY [None]
  - SNORING [None]
